FAERS Safety Report 9364714 (Version 1)
Quarter: 2013Q2

REPORT INFORMATION
  Report Type: Report from Study
  Country: US (occurrence: US)
  Receive Date: 20130624
  Receipt Date: 20130624
  Transmission Date: 20140414
  Serious: Yes (Hospitalization, Other)
  Sender: FDA-Public Use
  Company Number: US-ABBOTT-13P-163-1105894-00

PATIENT
  Age: 18 Year
  Sex: Male

DRUGS (3)
  1. HUMIRA [Suspect]
     Indication: CROHN^S DISEASE
     Dates: start: 201211
  2. OMEPRAZOLE [Concomitant]
     Indication: GASTRIC DISORDER
  3. XANAX [Concomitant]
     Indication: NAUSEA

REACTIONS (5)
  - Malaise [Recovering/Resolving]
  - Cholecystectomy [Unknown]
  - Tonsillitis [Recovering/Resolving]
  - Injection site pain [Not Recovered/Not Resolved]
  - Injection site pain [Not Recovered/Not Resolved]
